FAERS Safety Report 24049369 (Version 1)
Quarter: 2024Q3

REPORT INFORMATION
  Report Type: Spontaneous
  Country: GB (occurrence: GB)
  Receive Date: 20240704
  Receipt Date: 20240704
  Transmission Date: 20241016
  Serious: Yes (Other)
  Sender: ALKEM
  Company Number: None

PATIENT
  Age: 84 Year
  Sex: Female
  Weight: 61 kg

DRUGS (16)
  1. IBUPROFEN [Suspect]
     Active Substance: IBUPROFEN
     Indication: Ill-defined disorder
     Dosage: UNK
     Route: 065
     Dates: start: 20240119
  2. ALOGLIPTIN [Concomitant]
     Active Substance: ALOGLIPTIN
     Indication: Ill-defined disorder
     Dosage: UNK, QD, (1 DAILY)
     Route: 065
     Dates: start: 20231026
  3. CALCEOS [Concomitant]
     Active Substance: CALCIUM CARBONATE\CHOLECALCIFEROL
     Indication: Ill-defined disorder
     Dosage: 1 DOSAGE FORM, BID
     Route: 065
     Dates: start: 20231026
  4. CLOPIDOGREL [Concomitant]
     Active Substance: CLOPIDOGREL BISULFATE
     Indication: Ill-defined disorder
     Dosage: UNK, 1 (DAILY)
     Route: 065
     Dates: start: 20231026
  5. HYDROCORTISONE\MICONAZOLE NITRATE [Concomitant]
     Active Substance: HYDROCORTISONE\MICONAZOLE NITRATE
     Indication: Ill-defined disorder
     Dosage: UNK, BID, (APPLY TWICE DAILY)
     Route: 065
     Dates: start: 20231228, end: 20231229
  6. FLUOROURACIL [Concomitant]
     Active Substance: FLUOROURACIL
     Indication: Ill-defined disorder
     Dosage: UNK, (APPLY ON LESION ON FACE AND RIGHT ARM ONLY FOR)
     Route: 065
     Dates: start: 20240206, end: 20240305
  7. BECLOMETHASONE\FORMOTEROL [Concomitant]
     Active Substance: BECLOMETHASONE\FORMOTEROL
     Indication: Ill-defined disorder
     Dosage: UNK, (INHALE 2 PUFFS TWICE DAILY)
     Dates: start: 20231026
  8. LANSOPRAZOLE [Concomitant]
     Active Substance: LANSOPRAZOLE
     Indication: Ill-defined disorder
     Dosage: UNK, (TAKE ONE IN MORNING WITH WATER 30 TO 60 MINS BE)
     Route: 065
     Dates: start: 20231026
  9. BENSERAZIDE HYDROCHLORIDE\LEVODOPA [Concomitant]
     Active Substance: BENSERAZIDE HYDROCHLORIDE\LEVODOPA
     Indication: Ill-defined disorder
     Dosage: 1 DOSAGE FORM, QID, (1 TABLET FOUR TIMES A DAY)
     Route: 065
     Dates: start: 20231026
  10. MICONAZOLE [Concomitant]
     Active Substance: MICONAZOLE
     Indication: Ill-defined disorder
     Dosage: UNK, BID, (APPLY TWICE DAILY)
     Route: 065
     Dates: start: 20240125, end: 20240126
  11. MOMETASONE [Concomitant]
     Active Substance: MOMETASONE
     Indication: Ill-defined disorder
     Dosage: UNK, QD, (APPLY DAILY ON RASHES ON BODY ONLY)
     Route: 065
     Dates: start: 20240206, end: 20240305
  12. ACETAMINOPHEN [Concomitant]
     Active Substance: ACETAMINOPHEN
     Indication: Ill-defined disorder
     Dosage: UNK, QID,(TAKE 1-2 TABLETS FOUR TIMES A DAY )
     Route: 065
     Dates: start: 20231026
  13. RAMIPRIL [Concomitant]
     Active Substance: RAMIPRIL
     Indication: Ill-defined disorder
     Dosage: UNK, HS, (TAKE ONE AT NIGHT)
     Route: 065
     Dates: start: 20231026
  14. ALBUTEROL [Concomitant]
     Active Substance: ALBUTEROL
     Indication: Ill-defined disorder
     Dosage: UNK, PRN, (INHALE 2 DOSES AS NEEDED)
     Dates: start: 20231026
  15. SIMVASTATIN [Concomitant]
     Active Substance: SIMVASTATIN
     Indication: Ill-defined disorder
     Dosage: UNK, HS, (1 TABLET (S) AT NIGHT )
     Route: 065
     Dates: start: 20231026
  16. VAGIFEM [Concomitant]
     Active Substance: ESTRADIOL
     Indication: Ill-defined disorder
     Dosage: UNK, BID, (USE TWICE A WEEK )
     Route: 065
     Dates: start: 20231026

REACTIONS (1)
  - Rash [Recovered/Resolved]

NARRATIVE: CASE EVENT DATE: 20240122
